FAERS Safety Report 24762129 (Version 1)
Quarter: 2024Q4

REPORT INFORMATION
  Report Type: Spontaneous
  Country: ES (occurrence: ES)
  Receive Date: 20241221
  Receipt Date: 20241221
  Transmission Date: 20250114
  Serious: Yes (Hospitalization, Other)
  Sender: AUROBINDO
  Company Number: ES-RBHC-20-24-ESP-RB-0013159

PATIENT
  Age: 7 Year
  Sex: Female

DRUGS (1)
  1. IBUPROFEN [Suspect]
     Active Substance: IBUPROFEN
     Indication: Product used for unknown indication
     Dosage: UNKNOWN
     Route: 065

REACTIONS (4)
  - Acute oesophageal mucosal lesion [Recovered/Resolved]
  - Ectopic gastric mucosa [Recovered/Resolved]
  - Oesophageal disorder [Recovered/Resolved]
  - Drug ineffective [Not Recovered/Not Resolved]
